FAERS Safety Report 19368095 (Version 1)
Quarter: 2021Q2

REPORT INFORMATION
  Report Type: Spontaneous
  Country: US (occurrence: US)
  Receive Date: 20210602
  Receipt Date: 20210602
  Transmission Date: 20210717
  Serious: No
  Sender: FDA-Public Use
  Company Number: US-ROCHE-2589115

PATIENT
  Age: 49 Year
  Sex: Male
  Weight: 69.92 kg

DRUGS (13)
  1. CELEBREX [Concomitant]
     Active Substance: CELECOXIB
  2. TECFIDERA [Concomitant]
     Active Substance: DIMETHYL FUMARATE
  3. FOLIC ACID. [Concomitant]
     Active Substance: FOLIC ACID
  4. MAZINDOL [Concomitant]
     Active Substance: MAZINDOL
  5. VOLTAREN [Concomitant]
     Active Substance: DICLOFENAC SODIUM
  6. OXCARBAZEPINE. [Concomitant]
     Active Substance: OXCARBAZEPINE
  7. CARVEDILOL. [Concomitant]
     Active Substance: CARVEDILOL
  8. DEXILANT [Concomitant]
     Active Substance: DEXLANSOPRAZOLE
  9. VENTOLIN [Concomitant]
     Active Substance: ALBUTEROL SULFATE
  10. OCREVUS [Suspect]
     Active Substance: OCRELIZUMAB
     Indication: RELAPSING MULTIPLE SCLEROSIS
     Dosage: TWO 300 MG INFUSIONS SEPATRED BY TWO WEEKS ;ONGOING: YES
     Route: 042
     Dates: start: 20200402
  11. TRILEPTAL [Concomitant]
     Active Substance: OXCARBAZEPINE
  12. AMLODIPINE [Concomitant]
     Active Substance: AMLODIPINE BESYLATE
  13. COSENTYX [Concomitant]
     Active Substance: SECUKINUMAB

REACTIONS (2)
  - Mania [Unknown]
  - Aggression [Unknown]

NARRATIVE: CASE EVENT DATE: 20200417
